FAERS Safety Report 5156443-4 (Version None)
Quarter: 2006Q4

REPORT INFORMATION
  Report Type: 
  Country: None (occurrence: None)
  Receive Date: 20061113
  Receipt Date: 20061101
  Transmission Date: 20070319
  Serious: Yes (Other)
  Sender: FDA-Public Use
  Company Number: 2006134463

PATIENT
  Age: 76 Year
  Sex: Female
  Weight: 79.3795 kg

DRUGS (8)
  1. GEODON [Suspect]
     Indication: BIPOLAR DISORDER
     Dosage: 80 MG (80 MG, 1 IN 1 D), ORAL
     Route: 048
     Dates: start: 20060906, end: 20061029
  2. TOPROL (METORPOLOL) [Concomitant]
  3. LOVASTATIN [Concomitant]
  4. CAPTOPRIL [Concomitant]
  5. SPIRONOLACTONE [Concomitant]
  6. LEVOTHYROXINE SODIUM [Concomitant]
  7. EFFEXOR [Concomitant]
  8. OXAZEPAM [Concomitant]

REACTIONS (5)
  - CONTUSION [None]
  - FALL [None]
  - GAIT DISTURBANCE [None]
  - LOSS OF CONTROL OF LEGS [None]
  - SEDATION [None]
